FAERS Safety Report 8863523 (Version 1)
Quarter: 2012Q4

REPORT INFORMATION
  Report Type: 
  Country: JP (occurrence: JP)
  Receive Date: 20121024
  Receipt Date: 20121024
  Transmission Date: 20130627
  Serious: Yes (Death)
  Sender: FDA-Public Use
  Company Number: JP-BAXTER-2012BAX020915

PATIENT
  Age: 9 Year
  Sex: Male

DRUGS (8)
  1. ENDOXAN 1000 MG, POUDRE POUR SOLUTION INJECTABLE [Suspect]
     Indication: PRIMARY CENTRAL NERVOUS SYSTEM LYMPHOMA
     Dosage: 1G/M2
     Route: 065
  2. PREDNISOLONE [Suspect]
     Indication: PRIMARY CENTRAL NERVOUS SYSTEM LYMPHOMA
     Route: 065
  3. VINCRISTINE SULFATE [Suspect]
     Indication: PRIMARY CENTRAL NERVOUS SYSTEM LYMPHOMA
     Route: 065
  4. DAUNORUBICIN HYDROCHLORIDE [Suspect]
     Indication: PRIMARY CENTRAL NERVOUS SYSTEM LYMPHOMA
     Route: 065
  5. L-ASPARAGINASE [Suspect]
     Indication: PRIMARY CENTRAL NERVOUS SYSTEM LYMPHOMA
     Dosage: 6000 U/M2
     Route: 065
  6. METHOTREXATE [Suspect]
     Indication: PRIMARY CENTRAL NERVOUS SYSTEM LYMPHOMA
     Route: 037
  7. CYTARABINE [Suspect]
     Indication: PRIMARY CENTRAL NERVOUS SYSTEM LYMPHOMA
     Route: 037
  8. HYDROCORTISONE [Suspect]
     Indication: PRIMARY CENTRAL NERVOUS SYSTEM LYMPHOMA
     Route: 037

REACTIONS (2)
  - Venoocclusive liver disease [Fatal]
  - Brain herniation [Fatal]
